FAERS Safety Report 17788292 (Version 2)
Quarter: 2020Q4

REPORT INFORMATION
  Report Type: Spontaneous
  Country: GB (occurrence: GB)
  Receive Date: 20200515
  Receipt Date: 20201022
  Transmission Date: 20210113
  Serious: Yes (Death, Hospitalization)
  Sender: FDA-Public Use
  Company Number: GB-TEVA-2020-GB-1234240

PATIENT
  Age: 77 Year
  Sex: Female

DRUGS (5)
  1. TRESIBA [Concomitant]
     Active Substance: INSULIN DEGLUDEC
  2. NOVORAPID [Suspect]
     Active Substance: INSULIN ASPART
     Route: 065
  3. MIRTAZAPINE. [Suspect]
     Active Substance: MIRTAZAPINE
     Dosage: 30 MG
     Route: 048
  4. LOPERAMIDE [Suspect]
     Active Substance: LOPERAMIDE
     Dosage: THEN ONE TO BE TAKEN AFTER EACH LOOSE MOTION 30
     Route: 065
     Dates: start: 20200421
  5. PARACETAMOL [Concomitant]
     Active Substance: ACETAMINOPHEN

REACTIONS (11)
  - Pancreatitis [Fatal]
  - Pyrexia [Fatal]
  - Blood glucose increased [Fatal]
  - Diabetic ketoacidosis [Fatal]
  - Chills [Fatal]
  - Diarrhoea [Fatal]
  - Hypophagia [Fatal]
  - Lethargy [Fatal]
  - Haematemesis [Fatal]
  - Acute kidney injury [Fatal]
  - Death [Fatal]
